FAERS Safety Report 25215678 (Version 3)
Quarter: 2025Q2

REPORT INFORMATION
  Report Type: Spontaneous
  Country: JP (occurrence: JP)
  Receive Date: 20250418
  Receipt Date: 20250618
  Transmission Date: 20250716
  Serious: Yes (Hospitalization)
  Sender: ORGANON
  Company Number: JP-JT-EVA202501458Dermavant Sciences Inc.

PATIENT
  Age: 87 Year
  Sex: Female

DRUGS (16)
  1. VTAMA [Suspect]
     Active Substance: TAPINAROF
     Indication: Psoriasis
     Dosage: UNK, QD
     Route: 061
     Dates: start: 20250107, end: 20250221
  2. TRICHLORMETHIAZIDE [Suspect]
     Active Substance: TRICHLORMETHIAZIDE
     Dosage: 1 MILLIGRAM, QD
     Route: 048
  3. FAMOTIDINE [Concomitant]
     Active Substance: FAMOTIDINE
     Dosage: 10 MILLIGRAM, QD
     Route: 048
  4. DULOXETINE HYDROCHLORIDE [Concomitant]
     Active Substance: DULOXETINE HYDROCHLORIDE
     Dosage: 20 MILLIGRAM, QD
     Route: 048
  5. NIFEDIPINE [Concomitant]
     Active Substance: NIFEDIPINE
     Dosage: 40 MILLIGRAM, Q12H
     Route: 048
  6. MIROGABALIN BESYLATE [Concomitant]
     Active Substance: MIROGABALIN BESYLATE
     Dosage: 5 MILLIGRAM, Q12H
     Route: 048
  7. METHYLCOBALAMIN [Concomitant]
     Active Substance: METHYLCOBALAMIN
     Dosage: 0.5 MILLIGRAM, Q8H
     Route: 048
  8. LIMAPROST [Concomitant]
     Active Substance: LIMAPROST
     Dosage: 5 MILLIGRAM, Q8H
     Route: 048
  9. ENTRESTO [Concomitant]
     Active Substance: SACUBITRIL\VALSARTAN
     Dosage: 100 MILLIGRAM, QD
     Route: 048
  10. ROSUVASTATIN CALCIUM [Concomitant]
     Active Substance: ROSUVASTATIN CALCIUM
     Dosage: 2.5 MILLIGRAM, QD
     Route: 048
  11. AMITIZA [Concomitant]
     Active Substance: LUBIPROSTONE
     Dosage: 24 MICROGRAM, Q12H
     Route: 048
  12. FELBINAC [Concomitant]
     Active Substance: FELBINAC
     Dosage: 90 MILLILITER, QD
     Route: 003
  13. DESLORATADINE [Concomitant]
     Active Substance: DESLORATADINE
     Indication: Pruritus
     Dosage: 1 DOSAGE FORM, QD
     Route: 048
     Dates: start: 20241220, end: 20250221
  14. MYSER [DIFLUPREDNATE] [Concomitant]
     Indication: Eczema
     Dosage: 5 GRAM, Q12H
     Route: 003
     Dates: start: 20241220, end: 20250221
  15. LULICONAZOLE [Concomitant]
     Active Substance: LULICONAZOLE
     Indication: Tinea pedis
     Dosage: 10 GRAM, QD
     Route: 003
     Dates: start: 20241220, end: 20250221
  16. HERBALS [Concomitant]
     Active Substance: HERBALS
     Dosage: 1 PACKET , QD
     Route: 048

REACTIONS (2)
  - Medical device site burn [Recovered/Resolved]
  - Application site cellulitis [Recovered/Resolved]

NARRATIVE: CASE EVENT DATE: 20250226
